FAERS Safety Report 14271622 (Version 1)
Quarter: 2017Q4

REPORT INFORMATION
  Report Type: Report from Study
  Country: US (occurrence: US)
  Receive Date: 20171211
  Receipt Date: 20171211
  Transmission Date: 20180321
  Serious: Yes (Death, Other)
  Sender: FDA-Public Use
  Company Number: US-PFIZER INC-2017522467

PATIENT
  Sex: Male

DRUGS (4)
  1. DEXAMETHASONE. [Concomitant]
     Active Substance: DEXAMETHASONE
     Indication: PREMEDICATION
     Dosage: UNK (BEFORE EACH DOSE OF PACLITAXEL)
  2. PACLITAXEL. [Suspect]
     Active Substance: PACLITAXEL
     Indication: PROSTATE CANCER METASTATIC
     Dosage: 90 MG/M2, CYCLIC (6 WEEKS, FOLLOWED BY 2 WEEKS OFF THERAPY, 1-HOUR INTRAVENOUS INFUSION)
     Route: 042
  3. ESTRAMUSTINE SODIUM PHOSPHATE [Suspect]
     Active Substance: ESTRAMUSTINE PHOSPHATE SODIUM
     Indication: PROSTATE CANCER METASTATIC
     Dosage: 280 MG, 2X/DAY (FOR 3 DAYS BEGINNING 24 HOURS BEFORE THE FIRST DOSE OF PACLITAXEL)
     Route: 048
  4. DIPHENHYDRAMINE. [Concomitant]
     Active Substance: DIPHENHYDRAMINE
     Indication: PREMEDICATION
     Dosage: UNK (BEFORE EACH DOSE OF PACLITAXEL)

REACTIONS (2)
  - Pulmonary embolism [Unknown]
  - Renal failure [Fatal]
